FAERS Safety Report 12666507 (Version 1)
Quarter: 2016Q3

REPORT INFORMATION
  Report Type: Spontaneous
  Country: FI (occurrence: FI)
  Receive Date: 20160819
  Receipt Date: 20160819
  Transmission Date: 20161109
  Serious: Yes (Other)
  Sender: FDA-Public Use
  Company Number: FI-AMGEN-FINSP2016105048

PATIENT
  Sex: Female

DRUGS (3)
  1. ZOMETA [Suspect]
     Active Substance: ZOLEDRONIC ACID
     Indication: BREAST CANCER
     Dosage: SIX TIMES AT 3-WEEK INTERVALS
     Route: 065
     Dates: start: 2012
  2. XGEVA [Suspect]
     Active Substance: DENOSUMAB
     Indication: BREAST CANCER
     Dosage: UNK UNK, QMO
     Route: 065
     Dates: start: 201303, end: 201408
  3. BONDRONAT [Suspect]
     Active Substance: IBANDRONIC ACID
     Indication: BREAST CANCER
     Dosage: UNK
     Route: 065
     Dates: start: 201408, end: 2015

REACTIONS (1)
  - Osteonecrosis of jaw [Not Recovered/Not Resolved]
